FAERS Safety Report 5907770-1 (Version None)
Quarter: 2008Q3

REPORT INFORMATION
  Report Type: 
  Country: None (occurrence: None)
  Receive Date: 20080929
  Receipt Date: 20080915
  Transmission Date: 20090109
  Serious: Yes (Hospitalization, Other)
  Sender: FDA-Public Use
  Company Number: 340004M08FRA

PATIENT
  Sex: Female

DRUGS (3)
  1. OVITRELLE (CHORIOGONADOTROPIN ALFA) [Suspect]
     Indication: IN VITRO FERTILISATION
     Dosage: 1 MG, ONCE, SUBCUTANEOUS
     Route: 058
     Dates: start: 20080420, end: 20080420
  2. GONAL-F [Suspect]
     Indication: IN VITRO FERTILISATION
     Dosage: 150 IU, 1 IN 1 DAYS, INTRAMUSCULAR
     Route: 030
     Dates: start: 20080409, end: 20080419
  3. TRIPTORELIN (TRIPTORELIN) [Suspect]
     Indication: IN VITRO FERTILISATION
     Dosage: 0.1 MCG, INTRAMUSCULAR
     Route: 030
     Dates: start: 20080326, end: 20080419

REACTIONS (5)
  - ERYTHEMA [None]
  - EYELID OEDEMA [None]
  - FACE OEDEMA [None]
  - LIP SWELLING [None]
  - PRURITUS [None]
